FAERS Safety Report 23517863 (Version 2)
Quarter: 2024Q2

REPORT INFORMATION
  Report Type: Spontaneous
  Country: US (occurrence: US)
  Receive Date: 20240213
  Receipt Date: 20240502
  Transmission Date: 20240716
  Serious: No
  Sender: FDA-Public Use
  Company Number: US-PFIZER INC-PV202300118664

PATIENT
  Age: 77 Year
  Sex: Male

DRUGS (2)
  1. XALKORI [Suspect]
     Active Substance: CRIZOTINIB
     Indication: Lung cancer metastatic
     Dosage: TAKE 250 MG BY MOUTH 2 (TWO) TIMES A DAY.
     Route: 048
     Dates: start: 20240207
  2. XALKORI [Suspect]
     Active Substance: CRIZOTINIB
     Indication: ROS1 gene rearrangement

REACTIONS (1)
  - Blood test abnormal [Unknown]
